FAERS Safety Report 9381336 (Version 3)
Quarter: 2013Q3

REPORT INFORMATION
  Report Type: Spontaneous
  Country: JP (occurrence: JP)
  Receive Date: 20130703
  Receipt Date: 20130806
  Transmission Date: 20140515
  Serious: Yes (Other)
  Sender: FDA-Public Use
  Company Number: JP-ROCHE-1244304

PATIENT
  Age: 39 Year
  Sex: Male

DRUGS (10)
  1. XELODA [Suspect]
     Indication: RECTAL CANCER METASTATIC
     Dosage: DOSAGE IS UNCERTAIN.
     Route: 048
  2. AVASTIN [Suspect]
     Indication: RECTAL CANCER METASTATIC
     Dosage: DOSAGE IS UNCERTAIN.
     Route: 041
  3. AVASTIN [Suspect]
     Indication: RECTAL CANCER METASTATIC
  4. IRINOTECAN HYDROCHLORIDE [Suspect]
     Indication: RECTAL CANCER METASTATIC
     Dosage: DOSAGE IS UNCERTAIN.
     Route: 041
  5. IRINOTECAN HYDROCHLORIDE [Suspect]
     Indication: RECTAL CANCER METASTATIC
     Dosage: DOSAGE IS UNCERTAIN.
     Route: 041
  6. ELPLAT [Concomitant]
     Indication: RECTAL CANCER METASTATIC
     Dosage: DOSAGE IS UNCERTAIN.
     Route: 041
  7. TS-1 [Concomitant]
     Indication: RECTAL CANCER METASTATIC
     Dosage: DOSAGE IS UNCERTAIN.
     Route: 048
  8. LEVOFOLINATE [Concomitant]
     Indication: RECTAL CANCER METASTATIC
     Dosage: DOSAGE IS UNCERTAIN.
     Route: 041
  9. 5-FU [Concomitant]
     Indication: RECTAL CANCER METASTATIC
     Dosage: DOSAGE IS UNCERTAIN.
     Route: 040
  10. 5-FU [Concomitant]
     Indication: RECTAL CANCER METASTATIC
     Dosage: DOSAGE IS UNCERTAIN.
     Route: 041

REACTIONS (1)
  - Hepatic steatosis [Unknown]
